FAERS Safety Report 9164901 (Version 1)
Quarter: 2013Q1

REPORT INFORMATION
  Report Type: Spontaneous
  Country: US (occurrence: US)
  Receive Date: 20130315
  Receipt Date: 20130315
  Transmission Date: 20140127
  Serious: No
  Sender: FDA-Public Use
  Company Number: US-MYLANLABS-2013S1001331

PATIENT
  Sex: Female

DRUGS (2)
  1. CLOPIDOGREL TABLETS USP [Suspect]
     Route: 048
     Dates: start: 20130102, end: 201301
  2. CLOPIDOGREL TABLETS USP [Suspect]
     Route: 048
     Dates: start: 201301, end: 201301

REACTIONS (1)
  - Diarrhoea [Recovered/Resolved]
